FAERS Safety Report 13034066 (Version 1)
Quarter: 2016Q4

REPORT INFORMATION
  Report Type: Spontaneous
  Country: US (occurrence: US)
  Receive Date: 20161214
  Receipt Date: 20161214
  Transmission Date: 20170207
  Serious: No
  Sender: FDA-Public Use
  Company Number: None

PATIENT
  Age: 69 Year
  Sex: Male
  Weight: 99.8 kg

DRUGS (1)
  1. FINASTERIDE. [Suspect]
     Active Substance: FINASTERIDE
     Indication: BENIGN PROSTATIC HYPERPLASIA
     Route: 048
     Dates: start: 20160912, end: 20160926

REACTIONS (6)
  - Vomiting [None]
  - Dizziness [None]
  - Nausea [None]
  - Hypoaesthesia [None]
  - Myalgia [None]
  - Pain in jaw [None]

NARRATIVE: CASE EVENT DATE: 20160926
